FAERS Safety Report 20244976 (Version 1)
Quarter: 2021Q4

REPORT INFORMATION
  Report Type: Spontaneous
  Country: PT (occurrence: None)
  Receive Date: 20211229
  Receipt Date: 20211229
  Transmission Date: 20220303
  Serious: Yes (Hospitalization, Other)
  Sender: FDA-Public Use
  Company Number: PT-INFO-001383

PATIENT
  Age: 73 Year
  Sex: Female

DRUGS (1)
  1. ROPIVACAINE [Suspect]
     Active Substance: ROPIVACAINE
     Indication: Pain management
     Dosage: ROPIVACAINE 0.2% AT 4.5ML/H TO THE EPIDURAL SPACE
     Route: 008

REACTIONS (1)
  - Neuroleptic malignant syndrome [Recovered/Resolved]
